FAERS Safety Report 8145550-X (Version None)
Quarter: 2012Q1

REPORT INFORMATION
  Report Type: 
  Country: None (occurrence: None)
  Receive Date: 20120217
  Receipt Date: 20110415
  Transmission Date: 20120608
  Serious: No
  Sender: FDA-Public Use
  Company Number: US-ABBOTT-11P-163-0719331-00

PATIENT
  Sex: Male

DRUGS (1)
  1. SIMCOR [Suspect]
     Indication: PRODUCT USED FOR UNKNOWN INDICATION
     Dates: start: 20110101

REACTIONS (5)
  - FLUSHING [None]
  - RASH PAPULAR [None]
  - PAIN OF SKIN [None]
  - PRURITUS [None]
  - FEELING HOT [None]
